FAERS Safety Report 6011672-2 (Version None)
Quarter: 2008Q4

REPORT INFORMATION
  Report Type: 
  Country: None (occurrence: None)
  Receive Date: 20081218
  Receipt Date: 19880217
  Transmission Date: 20090506
  Serious: Yes (Death)
  Sender: FDA-Public Use
  Company Number: CH-ROCHE-870150593001

PATIENT
  Age: 54 Year
  Sex: Male

DRUGS (1)
  1. INTERFERON ALFA-2A [Suspect]
     Route: 065
     Dates: start: 19861020, end: 19861117

REACTIONS (2)
  - ASTHENIA [None]
  - DISEASE PROGRESSION [None]
